FAERS Safety Report 19287363 (Version 2)
Quarter: 2021Q2

REPORT INFORMATION
  Report Type: Report from Study
  Country: TW (occurrence: TW)
  Receive Date: 20210522
  Receipt Date: 20210526
  Transmission Date: 20210717
  Serious: Yes (Hospitalization)
  Sender: FDA-Public Use
  Company Number: TW-BRISTOL-MYERS SQUIBB COMPANY-BMS-2021-048822

PATIENT
  Age: 65 Year
  Sex: Male

DRUGS (4)
  1. NIVOLUMAB [Suspect]
     Active Substance: NIVOLUMAB
     Indication: NASOPHARYNGEAL CANCER
     Dosage: 3MG/KG (IVF) ON D1, D15
     Route: 042
     Dates: start: 20190528
  2. NIVOLUMAB [Suspect]
     Active Substance: NIVOLUMAB
     Dosage: 3 MILLIGRAM/KILOGRAM
     Route: 042
     Dates: start: 20210511
  3. IPILIMUMAB [Suspect]
     Active Substance: IPILIMUMAB
     Indication: NASOPHARYNGEAL CANCER
     Dosage: 1MG/KG (IVF) ON D1
     Route: 042
     Dates: start: 20190528
  4. IPILIMUMAB [Suspect]
     Active Substance: IPILIMUMAB
     Dosage: 1 MILLIGRAM/KILOGRAM
     Route: 042
     Dates: start: 20210511

REACTIONS (1)
  - COVID-19 [Unknown]

NARRATIVE: CASE EVENT DATE: 20210516
